FAERS Safety Report 8321882-7 (Version None)
Quarter: 2012Q2

REPORT INFORMATION
  Report Type: 
  Country: None (occurrence: None)
  Receive Date: 20120430
  Receipt Date: 20120426
  Transmission Date: 20120825
  Serious: Yes (Hospitalization)
  Sender: FDA-Public Use
  Company Number: IT-VIIV HEALTHCARE LIMITED-B0798991A

PATIENT
  Sex: Female

DRUGS (9)
  1. URSODIOL [Concomitant]
     Indication: LIVER DISORDER
     Dosage: 300MG PER DAY
     Route: 048
  2. REYATAZ [Concomitant]
     Indication: HIV INFECTION
     Dosage: 300MG PER DAY
     Route: 048
     Dates: start: 20120315, end: 20120413
  3. COLECALCIFEROL [Concomitant]
     Indication: HYPOCALCAEMIA
     Dosage: 20DROP PER DAY
     Route: 048
  4. NORVIR [Concomitant]
     Indication: HIV INFECTION
     Dosage: 100MG PER DAY
     Route: 048
     Dates: start: 20120315, end: 20120413
  5. DURAGESIC-100 [Concomitant]
     Indication: ANALGESIC THERAPY
     Dosage: 600MCG PER DAY
     Route: 062
  6. BACTRIM [Concomitant]
     Indication: HIV INFECTION
     Dosage: 960MG PER DAY
     Route: 048
  7. ABACAVIR SULFATE/LAMIVUDINE [Suspect]
     Indication: HIV INFECTION
     Dosage: 900MG PER DAY
     Route: 048
     Dates: start: 20120315, end: 20120413
  8. NEXIUM [Concomitant]
     Indication: PROPHYLAXIS
     Dosage: 40MG PER DAY
     Route: 048
  9. LASIX [Concomitant]
     Indication: LIVER DISORDER
     Dosage: 25MG PER DAY
     Route: 048

REACTIONS (2)
  - EYELID OEDEMA [None]
  - RASH PRURITIC [None]
